FAERS Safety Report 23385996 (Version 2)
Quarter: 2024Q1

REPORT INFORMATION
  Report Type: Spontaneous
  Country: US (occurrence: US)
  Receive Date: 20240110
  Receipt Date: 20240201
  Transmission Date: 20240410
  Serious: Yes (Other)
  Sender: FDA-Public Use
  Company Number: US-Blueprint Medicines Corporation-1929

PATIENT
  Sex: Female

DRUGS (2)
  1. AYVAKIT [Suspect]
     Active Substance: AVAPRITINIB
     Indication: Systemic mastocytosis
     Route: 065
     Dates: start: 20231025
  2. AYVAKIT [Suspect]
     Active Substance: AVAPRITINIB
     Indication: Indolent systemic mastocytosis
     Route: 048
     Dates: start: 20231123

REACTIONS (8)
  - Syncope [Unknown]
  - Weight decreased [Unknown]
  - Rash [Unknown]
  - Influenza [Unknown]
  - Swelling face [Unknown]
  - Mania [Unknown]
  - Multiple allergies [Unknown]
  - Product dose omission issue [Unknown]
